FAERS Safety Report 17196382 (Version 1)
Quarter: 2019Q4

REPORT INFORMATION
  Report Type: Spontaneous
  Country: US (occurrence: US)
  Receive Date: 20191224
  Receipt Date: 20191224
  Transmission Date: 20200122
  Serious: Yes (Other)
  Sender: FDA-Public Use
  Company Number: US-AMGEN-USASP2019211149

PATIENT
  Age: 68 Year
  Sex: Female

DRUGS (1)
  1. PROLIA [Suspect]
     Active Substance: DENOSUMAB
     Indication: OSTEOPENIA
     Dosage: 60 MILLIGRAM, Q6MO
     Route: 065
     Dates: start: 2014

REACTIONS (8)
  - Pruritus [Unknown]
  - Product use in unapproved indication [Unknown]
  - Erythema [Unknown]
  - Rash [Unknown]
  - Blepharitis [Unknown]
  - Allergy to metals [Unknown]
  - Dry eye [Unknown]
  - Foot fracture [Unknown]

NARRATIVE: CASE EVENT DATE: 201811
